FAERS Safety Report 10284650 (Version 1)
Quarter: 2014Q3

REPORT INFORMATION
  Report Type: Spontaneous
  Country: CN (occurrence: CN)
  Receive Date: 20140708
  Receipt Date: 20140708
  Transmission Date: 20150326
  Serious: Yes (Death, Other)
  Sender: FDA-Public Use
  Company Number: CN-CELGENEUS-035-21660-14033727

PATIENT
  Sex: Female

DRUGS (2)
  1. ABRAXANE [Suspect]
     Active Substance: PACLITAXEL
     Indication: BREAST CANCER
     Dosage: 17.8571 MILLIGRAM/SQ. METER
     Route: 065
  2. CISPLATIN. [Concomitant]
     Active Substance: CISPLATIN
     Indication: BREAST CANCER
     Dosage: 2.6786 MILLIGRAM/SQ. METER
     Route: 065

REACTIONS (35)
  - Death [Fatal]
  - Leukopenia [Unknown]
  - Breast cancer [Unknown]
  - Rash [Unknown]
  - Alopecia [Unknown]
  - Abdominal pain [Unknown]
  - Vision blurred [Unknown]
  - Neuropathy peripheral [Unknown]
  - Vomiting [Unknown]
  - Fatigue [Unknown]
  - Pyrexia [Unknown]
  - Nail disorder [Unknown]
  - Aphasia [Unknown]
  - Thrombocytopenia [Unknown]
  - Stomatitis [Unknown]
  - Skin hyperpigmentation [Unknown]
  - Neutropenia [Unknown]
  - Rash macular [Unknown]
  - Diarrhoea [Unknown]
  - Hepatic function abnormal [Unknown]
  - Dermatitis exfoliative [Unknown]
  - Nausea [Unknown]
  - Myalgia [Unknown]
  - Decreased appetite [Unknown]
  - Arthralgia [Unknown]
  - Lacrimation increased [Unknown]
  - Dyspnoea [Unknown]
  - Palmar-plantar erythrodysaesthesia syndrome [Unknown]
  - Febrile neutropenia [Unknown]
  - Hearing impaired [Unknown]
  - Oedema [Unknown]
  - Dizziness [Unknown]
  - Anaemia [Unknown]
  - Constipation [Unknown]
  - Insomnia [Unknown]
